FAERS Safety Report 16266401 (Version 1)
Quarter: 2019Q2

REPORT INFORMATION
  Report Type: Spontaneous
  Country: PL (occurrence: PL)
  Receive Date: 20190502
  Receipt Date: 20190502
  Transmission Date: 20190711
  Serious: Yes (Life-Threatening)
  Sender: FDA-Public Use
  Company Number: PL-TEVA-2019-PL-1044371

PATIENT
  Age: 45 Year
  Sex: Male
  Weight: 75.2 kg

DRUGS (1)
  1. CISPLATIN. [Suspect]
     Active Substance: CISPLATIN
     Indication: MALIGNANT RESPIRATORY TRACT NEOPLASM
     Dosage: ONE TIME DRUG ADMINISTRATION
     Route: 041
     Dates: start: 20140903

REACTIONS (4)
  - Feeling cold [Recovered/Resolved]
  - Anxiety [Recovered/Resolved]
  - Hypersensitivity [Recovered/Resolved]
  - Erythema [Recovered/Resolved]

NARRATIVE: CASE EVENT DATE: 20140903
